FAERS Safety Report 10083773 (Version 2)
Quarter: 2014Q4

REPORT INFORMATION
  Report Type: Spontaneous
  Country: JP (occurrence: JP)
  Receive Date: 20140417
  Receipt Date: 20141211
  Transmission Date: 20150528
  Serious: Yes (Life-Threatening, Hospitalization)
  Sender: FDA-Public Use
  Company Number: JP-TEVA-476263ISR

PATIENT
  Age: 76 Year
  Sex: Male

DRUGS (3)
  1. VESANOID [Concomitant]
     Active Substance: TRETINOIN
     Dates: start: 20120417, end: 20120507
  2. VESANOID [Concomitant]
     Active Substance: TRETINOIN
     Dates: start: 20120524, end: 20120625
  3. TRISENOX [Suspect]
     Active Substance: ARSENIC TRIOXIDE
     Indication: ACUTE PROMYELOCYTIC LEUKAEMIA
     Dosage: 10 MILLIGRAM DAILY;
     Dates: start: 20120516, end: 20120522

REACTIONS (3)
  - Tubulointerstitial nephritis [Unknown]
  - Condition aggravated [Unknown]
  - Disseminated intravascular coagulation [Recovered/Resolved]

NARRATIVE: CASE EVENT DATE: 20120516
